FAERS Safety Report 6943076-X (Version None)
Quarter: 2010Q3

REPORT INFORMATION
  Report Type: 
  Country: None (occurrence: None)
  Receive Date: 20100826
  Receipt Date: 20100818
  Transmission Date: 20110219
  Serious: Yes (Other)
  Sender: FDA-Public Use
  Company Number: GB-BRISTOL-MYERS SQUIBB COMPANY-15252240

PATIENT
  Age: 86 Year
  Sex: Male

DRUGS (2)
  1. HYDREA [Suspect]
     Dosage: DOSAGE:MONDAY TO FRIDAY
  2. ACETAMINOPHEN AND CODEINE PHOSPHATE [Concomitant]

REACTIONS (3)
  - COGNITIVE DISORDER [None]
  - MEMORY IMPAIRMENT [None]
  - POLYCYTHAEMIA [None]
